FAERS Safety Report 11103714 (Version 2)
Quarter: 2016Q1

REPORT INFORMATION
  Report Type: Spontaneous
  Country: US (occurrence: US)
  Receive Date: 20150511
  Receipt Date: 20160331
  Transmission Date: 20160525
  Serious: No
  Sender: FDA-Public Use
  Company Number: US-PFIZER INC-2015065559

PATIENT
  Sex: Female

DRUGS (1)
  1. SKELAXIN [Suspect]
     Active Substance: METAXALONE
     Dosage: UNK

REACTIONS (2)
  - Dizziness [Unknown]
  - Mobility decreased [Unknown]
